FAERS Safety Report 18887947 (Version 3)
Quarter: 2021Q2

REPORT INFORMATION
  Report Type: Spontaneous
  Country: US (occurrence: US)
  Receive Date: 20210212
  Receipt Date: 20210426
  Transmission Date: 20210717
  Serious: Yes (Hospitalization)
  Sender: FDA-Public Use
  Company Number: US-NOVOPROD-785369

PATIENT
  Sex: Female

DRUGS (2)
  1. NOVOLIN N [Suspect]
     Active Substance: INSULIN HUMAN
     Indication: TYPE 2 DIABETES MELLITUS
     Dosage: UNK
     Route: 058
     Dates: start: 1998
  2. NOVOLIN 70/30 [Suspect]
     Active Substance: INSULIN HUMAN
     Indication: TYPE 2 DIABETES MELLITUS
     Dosage: UNK
     Route: 058
     Dates: start: 1998

REACTIONS (7)
  - Suspected product tampering [Unknown]
  - Hallucination [Unknown]
  - Dehydration [Unknown]
  - Diarrhoea [Unknown]
  - Stupor [Unknown]
  - Illness [Unknown]
  - Hypersomnia [Unknown]

NARRATIVE: CASE EVENT DATE: 201907
